FAERS Safety Report 10195263 (Version 4)
Quarter: 2014Q3

REPORT INFORMATION
  Report Type: Report from Study
  Country: AU (occurrence: AU)
  Receive Date: 20140526
  Receipt Date: 20140722
  Transmission Date: 20150326
  Serious: Yes (Hospitalization)
  Sender: FDA-Public Use
  Company Number: AU-BRISTOL-MYERS SQUIBB COMPANY-20783593

PATIENT
  Age: 68 Year
  Sex: Male

DRUGS (9)
  1. ORENCIA [Suspect]
     Active Substance: ABATACEPT
     Indication: RHEUMATOID ARTHRITIS
     Dosage: LAST DOSE ON 17-APR-2014
     Route: 042
     Dates: start: 20131128
  2. PHENERGAN [Concomitant]
     Active Substance: PROMETHAZINE HYDROCHLORIDE
  3. TRAMADOL [Concomitant]
     Active Substance: TRAMADOL
  4. PREDNISOLONE. [Concomitant]
     Active Substance: PREDNISOLONE
  5. VENTOLIN [Concomitant]
     Active Substance: ALBUTEROL SULFATE
     Dosage: PUFFER
  6. METHOTREXATE [Concomitant]
     Active Substance: METHOTREXATE
  7. OXYCODONE [Concomitant]
     Active Substance: OXYCODONE
  8. FOLIC ACID. [Concomitant]
     Active Substance: FOLIC ACID
  9. FENTANYL. [Concomitant]
     Active Substance: FENTANYL

REACTIONS (3)
  - Pain in extremity [Recovering/Resolving]
  - Arthropathy [Recovering/Resolving]
  - Arthralgia [Recovering/Resolving]

NARRATIVE: CASE EVENT DATE: 20140424
